FAERS Safety Report 8589544-9 (Version None)
Quarter: 2012Q3

REPORT INFORMATION
  Report Type: 
  Country: None (occurrence: None)
  Receive Date: 20120813
  Receipt Date: 20120807
  Transmission Date: 20120928
  Serious: Yes (Hospitalization, Disabling, Other)
  Sender: FDA-Public Use
  Company Number: US-009507513-1112USA00801

PATIENT

DRUGS (3)
  1. FOSAMAX PLUS D [Suspect]
     Dosage: 70/2800
     Route: 048
     Dates: start: 20060814, end: 20080817
  2. FOSAMAX [Suspect]
     Indication: OSTEOPOROSIS
     Dosage: 10 MG
     Route: 048
     Dates: start: 20000530, end: 20091001
  3. FOSAMAX [Suspect]
     Dosage: 70 MG
     Route: 048
     Dates: start: 20000530, end: 20091001

REACTIONS (15)
  - HYPERTENSION [None]
  - UTERINE DISORDER [None]
  - FALL [None]
  - MUSCULOSKELETAL CHEST PAIN [None]
  - VEIN DISORDER [None]
  - ANAEMIA [None]
  - LIMB INJURY [None]
  - INTERVERTEBRAL DISC DISPLACEMENT [None]
  - BREAST CYST [None]
  - UNDERWEIGHT [None]
  - TONSILLAR DISORDER [None]
  - FEMUR FRACTURE [None]
  - EXCORIATION [None]
  - CARDIAC MURMUR [None]
  - APPENDIX DISORDER [None]
